FAERS Safety Report 8847484 (Version 10)
Quarter: 2013Q3

REPORT INFORMATION
  Report Type: Spontaneous
  Country: US (occurrence: US)
  Receive Date: 20121018
  Receipt Date: 20130812
  Transmission Date: 20140515
  Serious: Yes (Hospitalization, Other)
  Sender: FDA-Public Use
  Company Number: US-009507513-1202USA03514

PATIENT
  Sex: Female

DRUGS (6)
  1. FOSAMAX [Suspect]
     Indication: OSTEOPOROSIS
     Dosage: 10 MG, QW
     Route: 048
     Dates: start: 1998, end: 2011
  2. FOSAMAX [Suspect]
     Dosage: 70 MG UNK
     Route: 048
     Dates: start: 200204
  3. ALENDRONATE SODIUM [Suspect]
     Indication: OSTEOPOROSIS
     Dosage: 10 MG, QW
     Route: 048
     Dates: start: 20110406, end: 20110406
  4. SYNTHROID [Concomitant]
     Indication: THYROIDECTOMY
     Dosage: UNK
     Dates: start: 1962
  5. FIORICET [Concomitant]
     Indication: MIGRAINE
     Dosage: UNK
     Dates: start: 1980
  6. LIBRAX CAPSULES [Concomitant]
     Indication: IRRITABLE BOWEL SYNDROME
     Dosage: UNK
     Dates: start: 1970

REACTIONS (18)
  - Femur fracture [Recovered/Resolved]
  - Intramedullary rod insertion [Unknown]
  - Tibia fracture [Unknown]
  - Femur fracture [Unknown]
  - Internal fixation of fracture [Unknown]
  - Nephrolithiasis [Unknown]
  - Low turnover osteopathy [Unknown]
  - Haemostasis [Recovered/Resolved]
  - Inappropriate schedule of drug administration [Unknown]
  - Bursitis [Unknown]
  - Sacroiliitis [Unknown]
  - Vitamin D deficiency [Unknown]
  - Hand fracture [Unknown]
  - Adverse event [Unknown]
  - Adverse drug reaction [Unknown]
  - Asthenia [Unknown]
  - Abdominal pain upper [Unknown]
  - Back pain [Not Recovered/Not Resolved]
